FAERS Safety Report 12046921 (Version 3)
Quarter: 2018Q2

REPORT INFORMATION
  Report Type: Report from Study
  Country: US (occurrence: US)
  Receive Date: 20160209
  Receipt Date: 20180625
  Transmission Date: 20180711
  Serious: Yes (Other)
  Sender: FDA-Public Use
  Company Number: US-ROCHE-1705007

PATIENT
  Sex: Female

DRUGS (8)
  1. PROGESTERONE CREAM [Concomitant]
     Active Substance: PROGESTERONE
  2. OXYCODONE [Concomitant]
     Active Substance: OXYCODONE
     Dosage: 1 TABLET AS NEEDED
     Route: 048
  3. SYNTHROID [Concomitant]
     Active Substance: LEVOTHYROXINE SODIUM
     Dosage: 2 TABLETS ONCE A DAY
     Route: 065
  4. SYNTHROID [Concomitant]
     Active Substance: LEVOTHYROXINE SODIUM
     Indication: HORMONE REPLACEMENT THERAPY
     Route: 065
  5. NUTROPIN AQ [Suspect]
     Active Substance: SOMATROPIN
     Indication: PITUITARY TUMOUR
     Dosage: EVERY EVENING BEFORE BED
     Route: 058
     Dates: start: 2011
  6. XANAX [Concomitant]
     Active Substance: ALPRAZOLAM
     Dosage: 1 TABLET ONCE A DAY
     Route: 048
  7. NUTROPIN AQ [Suspect]
     Active Substance: SOMATROPIN
     Indication: GROWTH HORMONE DEFICIENCY
     Dosage: INJECTION DEVICE 10, 0.1 MG DOSING INCREMENTS, DISPENSED 3 MONTH SUPPLY AND REFILLED 4 TIMES
     Route: 058
  8. NUTROPIN AQ [Suspect]
     Active Substance: SOMATROPIN
     Indication: HYPOPITUITARISM

REACTIONS (22)
  - Disorientation [Not Recovered/Not Resolved]
  - Carpal tunnel syndrome [Not Recovered/Not Resolved]
  - Pyrexia [Unknown]
  - Neck pain [Unknown]
  - Blood glucose decreased [Not Recovered/Not Resolved]
  - Hyperhidrosis [Not Recovered/Not Resolved]
  - Confusional state [Unknown]
  - Fibromyalgia [Unknown]
  - Musculoskeletal pain [Not Recovered/Not Resolved]
  - Malaise [Unknown]
  - Headache [Unknown]
  - Muscle tightness [Unknown]
  - Anxiety [Unknown]
  - Pituitary tumour [Unknown]
  - Calcinosis [Not Recovered/Not Resolved]
  - Asthenia [Unknown]
  - Impaired driving ability [Not Recovered/Not Resolved]
  - Drug ineffective [Unknown]
  - Dizziness [Unknown]
  - Nervous system disorder [Not Recovered/Not Resolved]
  - Fatigue [Unknown]
  - Cystitis interstitial [Unknown]

NARRATIVE: CASE EVENT DATE: 2013
